FAERS Safety Report 5664367-9 (Version None)
Quarter: 2008Q1

REPORT INFORMATION
  Report Type: 
  Country: None (occurrence: None)
  Receive Date: 20080312
  Receipt Date: 20080303
  Transmission Date: 20080703
  Serious: Yes (Other)
  Sender: FDA-Public Use
  Company Number: 2008SP004542

PATIENT
  Sex: Male

DRUGS (1)
  1. DRIXORAL [Suspect]
     Indication: DRUG USE FOR UNKNOWN INDICATION
     Dosage: 1 DF; PO
     Route: 048

REACTIONS (2)
  - PALPITATIONS [None]
  - SUICIDAL IDEATION [None]
